FAERS Safety Report 23946459 (Version 1)
Quarter: 2024Q2

REPORT INFORMATION
  Report Type: Report from Study
  Country: CL (occurrence: CL)
  Receive Date: 20240606
  Receipt Date: 20240606
  Transmission Date: 20240715
  Serious: Yes (Hospitalization)
  Sender: FDA-Public Use
  Company Number: CL-JNJFOC-20240603838

PATIENT
  Age: 66 Year
  Sex: Female

DRUGS (1)
  1. SIMPONI [Suspect]
     Active Substance: GOLIMUMAB
     Indication: Rheumatoid arthritis
     Route: 058
     Dates: start: 20210520

REACTIONS (5)
  - Septic shock [Unknown]
  - Pneumonia [Not Recovered/Not Resolved]
  - Hypertension [Unknown]
  - Bacteraemia [Unknown]
  - Hypoglycaemia [Unknown]
